FAERS Safety Report 15950545 (Version 1)
Quarter: 2019Q1

REPORT INFORMATION
  Report Type: Spontaneous
  Country: US (occurrence: US)
  Receive Date: 20190211
  Receipt Date: 20190211
  Transmission Date: 20190417
  Serious: No
  Sender: FDA-Public Use
  Company Number: US-BAUSCH-BL-2017-035376

PATIENT
  Age: 87 Year
  Sex: Male

DRUGS (2)
  1. DOXYCYCLINE. [Suspect]
     Active Substance: DOXYCYCLINE
     Indication: PRODUCT USED FOR UNKNOWN INDICATION
     Route: 065
     Dates: end: 20171222
  2. PRESERVISION AREDS 2 MULTIVITAMIN SOFT GELS [Suspect]
     Active Substance: MINERALS\VITAMINS
     Indication: MACULAR DEGENERATION
     Route: 048
     Dates: start: 20171120, end: 20171201

REACTIONS (5)
  - Visual impairment [Unknown]
  - Hypoacusis [Unknown]
  - Pollakiuria [Recovered/Resolved]
  - Memory impairment [Unknown]
  - Glucose urine present [Unknown]

NARRATIVE: CASE EVENT DATE: 201712
